FAERS Safety Report 23830486 (Version 1)
Quarter: 2024Q2

REPORT INFORMATION
  Report Type: Other
  Country: US (occurrence: US)
  Receive Date: 20240508
  Receipt Date: 20240508
  Transmission Date: 20240716
  Serious: Yes (Other)
  Sender: FDA-Public Use
  Company Number: US-Appco Pharma LLC-2156696

PATIENT
  Age: 53 Year
  Sex: Female

DRUGS (2)
  1. BACLOFEN [Suspect]
     Active Substance: BACLOFEN
     Indication: Trismus
     Route: 065
  2. MELOXICAM [Suspect]
     Active Substance: MELOXICAM
     Route: 065

REACTIONS (1)
  - Treatment failure [Unknown]
